FAERS Safety Report 14319705 (Version 2)
Quarter: 2018Q1

REPORT INFORMATION
  Report Type: Spontaneous
  Country: AU (occurrence: AU)
  Receive Date: 20171222
  Receipt Date: 20180103
  Transmission Date: 20180509
  Serious: Yes (Life-Threatening, Hospitalization, Other)
  Sender: FDA-Public Use
  Company Number: AU-SA-2017SA252877

PATIENT
  Age: 34 Year
  Sex: Female

DRUGS (5)
  1. ALEMTUZUMAB [Suspect]
     Active Substance: ALEMTUZUMAB
     Indication: RELAPSING-REMITTING MULTIPLE SCLEROSIS
     Route: 041
     Dates: start: 20151116
  2. CETIRIZINE [Concomitant]
     Active Substance: CETIRIZINE HYDROCHLORIDE
     Indication: MECHANICAL URTICARIA
     Route: 065
  3. THYROXIN [Concomitant]
     Active Substance: LEVOTHYROXINE
     Indication: HYPOTHYROIDISM
     Route: 065
  4. GADOLINIUM [Concomitant]
     Active Substance: GADOLINIUM
     Route: 065
  5. ALEMTUZUMAB [Suspect]
     Active Substance: ALEMTUZUMAB
     Indication: RELAPSING-REMITTING MULTIPLE SCLEROSIS
     Route: 041
     Dates: start: 201611

REACTIONS (13)
  - Ecchymosis [Recovered/Resolved]
  - Basedow^s disease [Unknown]
  - Oedema peripheral [Unknown]
  - JC polyomavirus test positive [Unknown]
  - Increased tendency to bruise [Unknown]
  - Lymphopenia [Unknown]
  - Muscle haemorrhage [Unknown]
  - Blood thyroid stimulating hormone decreased [Unknown]
  - Haemorrhage subcutaneous [Unknown]
  - Autoantibody positive [Unknown]
  - Acquired haemophilia [Unknown]
  - Pain in extremity [Unknown]
  - Thyroxine free increased [Unknown]

NARRATIVE: CASE EVENT DATE: 2016
